FAERS Safety Report 4390038-5 (Version None)
Quarter: 2004Q2

REPORT INFORMATION
  Report Type: 
  Country: None (occurrence: None)
  Receive Date: 20040630
  Receipt Date: 20040614
  Transmission Date: 20050107
  Serious: Yes (Hospitalization)
  Sender: FDA-Public Use
  Company Number: 2001072501FR

PATIENT
  Age: 64 Year
  Sex: Male

DRUGS (6)
  1. CAMPTOSAR [Suspect]
     Indication: COLORECTAL CANCER
     Dosage: 320 MG, CYCLIC , IV
     Route: 042
     Dates: start: 20010822, end: 20010822
  2. ELVORINE(CALCIUM LEVOFOLINATE) [Suspect]
     Indication: COLORECTAL CANCER
     Dosage: 360 MG, CYCLIC, IV
     Route: 042
     Dates: start: 20010822, end: 20010822
  3. FLUOROURACIL [Suspect]
     Indication: COLORECTAL CANCER
     Dosage: SEE IMAGE
     Route: 040
     Dates: start: 20010822, end: 20010822
  4. FLUOROURACIL [Suspect]
     Indication: COLORECTAL CANCER
     Dosage: SEE IMAGE
     Route: 040
     Dates: start: 20010822, end: 20010822
  5. PRIMPERAN INJ [Concomitant]
  6. ATROPINE [Concomitant]

REACTIONS (3)
  - AXILLARY VEIN THROMBOSIS [None]
  - JUGULAR VEIN THROMBOSIS [None]
  - PHLEBOTHROMBOSIS [None]
